FAERS Safety Report 12310275 (Version 1)
Quarter: 2016Q2

REPORT INFORMATION
  Report Type: Spontaneous
  Country: US (occurrence: None)
  Receive Date: 20160426
  Receipt Date: 20160426
  Transmission Date: 20160815
  Serious: Yes (Life-Threatening, Hospitalization, Other)
  Sender: FDA-Public Use
  Company Number: None

PATIENT
  Age: 26 Year
  Sex: Female
  Weight: 95.26 kg

DRUGS (1)
  1. COPPER IUD [Suspect]
     Active Substance: COPPER\INTRAUTERINE DEVICE
     Dates: start: 20090801

REACTIONS (4)
  - Rash generalised [None]
  - Muscle spasms [None]
  - Infection [None]
  - Menorrhagia [None]

NARRATIVE: CASE EVENT DATE: 20160201
